FAERS Safety Report 16984442 (Version 2)
Quarter: 2020Q1

REPORT INFORMATION
  Report Type: Spontaneous
  Country: US (occurrence: US)
  Receive Date: 20191101
  Receipt Date: 20200310
  Transmission Date: 20200409
  Serious: No
  Sender: FDA-Public Use
  Company Number: US-FARMAPROD-201909-1384

PATIENT
  Sex: Male

DRUGS (7)
  1. TIMOLOL. [Concomitant]
     Active Substance: TIMOLOL
  2. POLYMYXIN B SULFATE TRIMETHOPRIM [Concomitant]
  3. OXERVATE [Suspect]
     Active Substance: CENEGERMIN-BKBJ
     Indication: NEUROTROPHIC KERATOPATHY
     Route: 047
     Dates: start: 20190909
  4. DUREZOL [Concomitant]
     Active Substance: DIFLUPREDNATE
  5. LOSARTAN. [Concomitant]
     Active Substance: LOSARTAN
  6. BLOOD SERUM [Concomitant]
  7. BISOPROLOL [Concomitant]
     Active Substance: BISOPROLOL

REACTIONS (4)
  - Photophobia [Not Recovered/Not Resolved]
  - Product dose omission [Unknown]
  - Eye pain [Not Recovered/Not Resolved]
  - Product quality issue [Unknown]
